FAERS Safety Report 24391135 (Version 1)
Quarter: 2024Q4

REPORT INFORMATION
  Report Type: Spontaneous
  Country: GB (occurrence: GB)
  Receive Date: 20241003
  Receipt Date: 20241003
  Transmission Date: 20250115
  Serious: Yes (Death, Other)
  Sender: GENMAB
  Company Number: GB-ABBVIE-5946686

PATIENT
  Age: 60 Year
  Sex: Male

DRUGS (1)
  1. EPCORITAMAB [Suspect]
     Active Substance: EPCORITAMAB
     Indication: Diffuse large B-cell lymphoma
     Dosage: C1, D1-D8
     Route: 058

REACTIONS (2)
  - Diffuse large B-cell lymphoma [Fatal]
  - Intestinal perforation [Unknown]
